FAERS Safety Report 24661138 (Version 1)
Quarter: 2024Q4

REPORT INFORMATION
  Report Type: Spontaneous
  Country: US (occurrence: US)
  Receive Date: 20241125
  Receipt Date: 20241125
  Transmission Date: 20250115
  Serious: No
  Sender: AVADEL CNS PHARMACEUTICALS, LLC
  Company Number: US-AVADEL CNS PHARMACEUTICALS, LLC-2024AVA01487

PATIENT
  Age: 18 Year
  Sex: Female
  Weight: 80.68 kg

DRUGS (7)
  1. LUMRYZ [Suspect]
     Active Substance: SODIUM OXYBATE
     Indication: Narcolepsy
     Dosage: 4.5 G
     Route: 048
     Dates: start: 202307
  2. LUMRYZ [Suspect]
     Active Substance: SODIUM OXYBATE
     Indication: Narcolepsy
     Dosage: 6 G
     Route: 048
  3. LUMRYZ [Suspect]
     Active Substance: SODIUM OXYBATE
     Indication: Narcolepsy
     Dosage: 9 G, ONCE NIGHTLY
     Route: 048
  4. VITAMINS [Concomitant]
     Active Substance: VITAMINS
  5. MAGNESIUM [Concomitant]
     Active Substance: MAGNESIUM
  6. HERBALS\PLANTAGO OVATA SEED COAT [Concomitant]
     Active Substance: HERBALS\PLANTAGO OVATA SEED COAT
  7. DULOXETINE HYDROCHLORIDE [Concomitant]
     Active Substance: DULOXETINE HYDROCHLORIDE
     Dosage: UNK

REACTIONS (3)
  - Vomiting [Unknown]
  - Nausea [Unknown]
  - Drug ineffective [Unknown]

NARRATIVE: CASE EVENT DATE: 20230701
